FAERS Safety Report 10206617 (Version 1)
Quarter: 2014Q2

REPORT INFORMATION
  Report Type: Spontaneous
  Country: US (occurrence: US)
  Receive Date: 20140530
  Receipt Date: 20140530
  Transmission Date: 20141212
  Serious: No
  Sender: FDA-Public Use
  Company Number: US-GLAXOSMITHKLINE-A1067332A

PATIENT
  Age: 63 Year
  Sex: Male

DRUGS (2)
  1. FLOLAN [Suspect]
     Indication: PULMONARY ARTERIAL HYPERTENSION
     Dosage: 28.5NGKM CONTINUOUS
     Route: 042
     Dates: start: 20020816
  2. COUMADIN [Concomitant]

REACTIONS (4)
  - Flushing [Recovered/Resolved]
  - Heart rate increased [Recovered/Resolved]
  - Adverse drug reaction [Recovered/Resolved]
  - Product quality issue [Unknown]
